FAERS Safety Report 15745845 (Version 1)
Quarter: 2018Q4

REPORT INFORMATION
  Report Type: Spontaneous
  Country: HU (occurrence: HU)
  Receive Date: 20181220
  Receipt Date: 20181220
  Transmission Date: 20190205
  Serious: Yes (Life-Threatening, Hospitalization)
  Sender: FDA-Public Use
  Company Number: HU-PFIZER INC-2018523271

PATIENT
  Age: 50 Year
  Sex: Male
  Weight: 60 kg

DRUGS (4)
  1. VENCLYXTO [Interacting]
     Active Substance: VENETOCLAX
     Dosage: RAMP-UP SCHEDULE WITH A TARGET DOSE OF 400 MG/DAY
     Route: 048
     Dates: start: 201712
  2. METHYLPREDNISOLONE SODIUM SUCCINATE. [Interacting]
     Active Substance: METHYLPREDNISOLONE SODIUM SUCCINATE
     Dosage: 32 MG, 1X/DAY
     Route: 042
  3. METHYLPREDNISOLONE SODIUM SUCCINATE. [Suspect]
     Active Substance: METHYLPREDNISOLONE SODIUM SUCCINATE
     Indication: LYMPHADENITIS
     Dosage: 1000 MG, UNK
     Route: 042
  4. VENCLYXTO [Interacting]
     Active Substance: VENETOCLAX
     Indication: CHRONIC LYMPHOCYTIC LEUKAEMIA
     Dosage: 100 MG, 1X/DAY
     Route: 048
     Dates: start: 201707

REACTIONS (2)
  - Drug interaction [Recovered/Resolved]
  - Tumour lysis syndrome [Recovered/Resolved]
